FAERS Safety Report 7356833 (Version 2)
Quarter: 2014Q2

REPORT INFORMATION
  Report Type: Spontaneous
  Country: US (occurrence: None)
  Receive Date: 20100401
  Receipt Date: 20140630
  Transmission Date: 20141212
  Serious: Yes (Other)
  Sender: FDA-Public Use
  Company Number: 2010S1001760

PATIENT
  Age: 61 Year
  Sex: Female

DRUGS (4)
  1. FLEET PHOSPHO-SODA [Suspect]
     Indication: COLONOSCOPY
     Dosage: PO
     Route: 048
     Dates: start: 20081205, end: 20081205
  2. CALAN /00014302/ (VERAPAMIL HYDROCHLORIDE) [Concomitant]
  3. DIOVAN /01319601/ (VALSARTAN) [Concomitant]
  4. CLONIDINE (CLONIDINE) [Concomitant]

REACTIONS (1)
  - Renal disorder [None]
